FAERS Safety Report 7123537-3 (Version None)
Quarter: 2010Q4

REPORT INFORMATION
  Report Type: 
  Country: None (occurrence: None)
  Receive Date: 20101125
  Receipt Date: 20101124
  Transmission Date: 20110411
  Serious: Yes (Other)
  Sender: FDA-Public Use
  Company Number: CN-PFIZER INC-2010149846

PATIENT
  Age: 63 Year
  Sex: Female

DRUGS (3)
  1. VFEND [Suspect]
     Indication: FUNGAL INFECTION
     Dosage: UNK
     Route: 041
     Dates: start: 20100101, end: 20100101
  2. VFEND [Suspect]
     Dosage: UNK
     Dates: start: 20100101, end: 20100101
  3. VFEND [Suspect]
     Dosage: UNK
     Route: 048

REACTIONS (3)
  - BLOOD BILIRUBIN INCREASED [None]
  - HEPATIC LESION [None]
  - RASH [None]
